FAERS Safety Report 19352792 (Version 3)
Quarter: 2021Q2

REPORT INFORMATION
  Report Type: Spontaneous
  Country: US (occurrence: US)
  Receive Date: 20210531
  Receipt Date: 20210616
  Transmission Date: 20210717
  Serious: No
  Sender: FDA-Public Use
  Company Number: US-JNJFOC-20210549474

PATIENT
  Age: 8 Decade
  Sex: Female
  Weight: 68.1 kg

DRUGS (1)
  1. WOMENS ROGAINE UNSCENTED [Suspect]
     Active Substance: MINOXIDIL
     Indication: ALOPECIA
     Dosage: HALF A CUP EVERY NIGHT?LAST PRODUCT USE DATE: 24?MAY?2021
     Route: 061
     Dates: start: 2019

REACTIONS (1)
  - Therapeutic product effect incomplete [Unknown]
